FAERS Safety Report 22063896 (Version 1)
Quarter: 2023Q1

REPORT INFORMATION
  Report Type: Spontaneous
  Country: GB (occurrence: GB)
  Receive Date: 20230306
  Receipt Date: 20230306
  Transmission Date: 20230418
  Serious: Yes (Other)
  Sender: FDA-Public Use
  Company Number: None

PATIENT
  Age: 61 Year
  Sex: Male
  Weight: 88 kg

DRUGS (17)
  1. LOSARTAN [Suspect]
     Active Substance: LOSARTAN
     Dates: start: 20211129
  2. ALLOPURINOL [Concomitant]
     Active Substance: ALLOPURINOL
     Dosage: ONE TO BE TAKEN THREE TIMES A DAY
     Dates: start: 20221111
  3. ASPIRIN [Concomitant]
     Active Substance: ASPIRIN
     Dosage: TAKE ONE DAILY
     Dates: start: 20221111
  4. BISOPROLOL [Concomitant]
     Active Substance: BISOPROLOL
     Dosage: TAKE ONE DAILY
     Dates: start: 20221111
  5. BUMETANIDE [Concomitant]
     Active Substance: BUMETANIDE
     Dosage: TWO TO BE TAKEN  DAILY AS PER CARDIAC NURSE INS...
     Dates: start: 20221111
  6. CHLORHEXIDINE GLUCONATE [Concomitant]
     Active Substance: CHLORHEXIDINE GLUCONATE
     Dosage: USE AS DIRECTED
     Dates: start: 20221111
  7. DAPAGLIFLOZIN [Concomitant]
     Active Substance: DAPAGLIFLOZIN
     Dosage: TAKE ONE DAILY
     Dates: start: 20221111
  8. DICLOFENAC DIETHYLAMINE [Concomitant]
     Active Substance: DICLOFENAC DIETHYLAMINE
     Dosage: APPLY 3 TIMES/DAY
     Dates: start: 20221111
  9. LANOLIN\LIGHT MINERAL OIL\PARAFFIN [Concomitant]
     Active Substance: LANOLIN\LIGHT MINERAL OIL\PARAFFIN
     Dosage: APPLY AS NEEDED
     Dates: start: 20221111
  10. DEXTROSE [Concomitant]
     Active Substance: DEXTROSE
     Dosage: USE AS DIRECTED IF BLOOD SUGAR UNDER 5
     Dates: start: 20221111
  11. HYDRALAZINE [Concomitant]
     Active Substance: HYDRALAZINE HYDROCHLORIDE
     Dosage: TAKE ONE TWICE DAILY
     Dates: start: 20221111, end: 20230118
  12. ISOSORBIDE MONONITRATE [Concomitant]
     Active Substance: ISOSORBIDE MONONITRATE
     Dosage: TAKE ONE TWICE DAILY
     Dates: start: 20221111
  13. LANSOPRAZOLE [Concomitant]
     Active Substance: LANSOPRAZOLE
     Dosage: TAKE ONE ONCE DAILY TO PROTECT STOMACH
     Dates: start: 20221111
  14. NOVORAPID [Concomitant]
     Active Substance: INSULIN ASPART
     Dosage: USE AS DIRECTED
     Dates: start: 20221111
  15. OILATUM [Concomitant]
     Dosage: USE AS DIRECTED
     Dates: start: 20221111
  16. ROSUVASTATIN [Concomitant]
     Active Substance: ROSUVASTATIN
     Dosage: TAKE ONE DAILY
     Dates: start: 20221111
  17. SEMGLEE [Concomitant]
     Dosage: 20 UNITS TO BE USED AT NIGHT
     Dates: start: 20221111

REACTIONS (1)
  - Blood potassium increased [Recovered/Resolved]

NARRATIVE: CASE EVENT DATE: 20230215
